FAERS Safety Report 7246531-0 (Version None)
Quarter: 2011Q1

REPORT INFORMATION
  Report Type: 
  Country: None (occurrence: None)
  Receive Date: 20110127
  Receipt Date: 20110114
  Transmission Date: 20110831
  Serious: Yes (Other)
  Sender: FDA-Public Use
  Company Number: CA-BIOGENIDEC-2010BI013542

PATIENT
  Age: 39 Year
  Sex: Female

DRUGS (5)
  1. DETROL [Concomitant]
  2. MULTI-VITAMINS [Concomitant]
  3. VITAMIN D [Concomitant]
  4. TYSABRI [Suspect]
     Indication: MULTIPLE SCLEROSIS
     Route: 042
     Dates: start: 20071031, end: 20100401
  5. OMEGAS [Concomitant]

REACTIONS (1)
  - ABORTION SPONTANEOUS [None]
